FAERS Safety Report 5656724-1 (Version None)
Quarter: 2008Q1

REPORT INFORMATION
  Report Type: 
  Country: None (occurrence: None)
  Receive Date: 20080310
  Receipt Date: 20080227
  Transmission Date: 20080703
  Serious: Yes (Other)
  Sender: FDA-Public Use
  Company Number: DE-NOVOPROD-272717

PATIENT
  Age: 36 Year
  Sex: Female

DRUGS (1)
  1. ACTRAPID [Suspect]
     Indication: TYPE 1 DIABETES MELLITUS

REACTIONS (12)
  - ANGIOEDEMA [None]
  - BLOOD GLUCOSE ABNORMAL [None]
  - CONFUSIONAL STATE [None]
  - DIPLOPIA [None]
  - INJECTION SITE INDURATION [None]
  - INSULIN RESISTANCE [None]
  - PALPITATIONS [None]
  - PARAESTHESIA [None]
  - PARAESTHESIA ORAL [None]
  - PRURITUS [None]
  - RASH MACULO-PAPULAR [None]
  - URTICARIA [None]
